FAERS Safety Report 6218475-4 (Version None)
Quarter: 2009Q2

REPORT INFORMATION
  Report Type: 
  Country: None (occurrence: None)
  Receive Date: 20090608
  Receipt Date: 20090525
  Transmission Date: 20091009
  Serious: Yes (Hospitalization)
  Sender: FDA-Public Use
  Company Number: B0574285A

PATIENT
  Weight: 3 kg

DRUGS (6)
  1. PAXIL [Suspect]
     Indication: PANIC DISORDER
  2. MEILAX [Suspect]
  3. DEPAS [Suspect]
  4. SOLANAX [Suspect]
  5. UTEMERIN [Concomitant]
  6. RHYTHMY [Concomitant]

REACTIONS (4)
  - CONVULSION NEONATAL [None]
  - DRUG EXPOSURE DURING PREGNANCY [None]
  - DRUG WITHDRAWAL SYNDROME NEONATAL [None]
  - NEONATAL ASPHYXIA [None]
